FAERS Safety Report 6197193-5 (Version None)
Quarter: 2009Q2

REPORT INFORMATION
  Report Type: 
  Country: None (occurrence: None)
  Receive Date: 20090520
  Receipt Date: 20090511
  Transmission Date: 20091009
  Serious: Yes (Hospitalization, Disabling, Other)
  Sender: FDA-Public Use
  Company Number: US-MERCK-0902USA03923

PATIENT
  Age: 72 Year
  Sex: Female

DRUGS (4)
  1. FOSAMAX [Suspect]
     Indication: OSTEOPENIA
     Route: 048
     Dates: start: 20011201, end: 20080701
  2. FOSAMAX [Suspect]
     Route: 048
     Dates: start: 19980601
  3. FOSAMAX [Suspect]
     Route: 048
     Dates: start: 20000101
  4. FOSAMAX PLUS D [Suspect]
     Indication: OSTEOPENIA
     Route: 048
     Dates: start: 20000101

REACTIONS (10)
  - ANAEMIA [None]
  - BONE DISORDER [None]
  - CARDIAC DISORDER [None]
  - FEMUR FRACTURE [None]
  - FOOT DEFORMITY [None]
  - JOINT EFFUSION [None]
  - OSTEOARTHRITIS [None]
  - OSTEOPOROSIS [None]
  - STRESS FRACTURE [None]
  - TENDONITIS [None]
